FAERS Safety Report 21585019 (Version 1)
Quarter: 2022Q4

REPORT INFORMATION
  Report Type: Spontaneous
  Country: BR (occurrence: BR)
  Receive Date: 20221111
  Receipt Date: 20221111
  Transmission Date: 20230112
  Serious: Yes (Life-Threatening, Other)
  Sender: FDA-Public Use
  Company Number: BR-JNJFOC-20221114847

PATIENT
  Sex: Male

DRUGS (1)
  1. IMBRUVICA [Suspect]
     Active Substance: IBRUTINIB
     Indication: Mantle cell lymphoma
     Route: 048
     Dates: end: 202208

REACTIONS (1)
  - Adverse drug reaction [Unknown]
